FAERS Safety Report 24018146 (Version 1)
Quarter: 2024Q2

REPORT INFORMATION
  Report Type: Spontaneous
  Country: JP (occurrence: JP)
  Receive Date: 20240627
  Receipt Date: 20240627
  Transmission Date: 20240715
  Serious: Yes (Death, Hospitalization)
  Sender: FDA-Public Use
  Company Number: JP-VANTIVE-2024VAN017642

PATIENT
  Age: 78 Year
  Sex: Male

DRUGS (2)
  1. REGUNEAL LCA [Suspect]
     Active Substance: CALCIUM CHLORIDE\DEXTROSE MONOHYDRATE\HYDROCHLORIC ACID\MAGNESIUM CHLORIDE\SODIUM BICARBONATE\SODIUM
     Indication: Renal failure
     Dosage: 1500ML TWICE DAILY
     Route: 033
     Dates: start: 20231213
  2. EXTRANEAL [Suspect]
     Active Substance: CALCIUM CHLORIDE\ICODEXTRIN\MAGNESIUM CHLORIDE\SODIUM CHLORIDE\SODIUM LACTATE
     Indication: Renal failure
     Dosage: 1500ML ONCE DAILY
     Route: 033
     Dates: start: 20231213

REACTIONS (3)
  - Marasmus [Fatal]
  - Decreased appetite [Fatal]
  - Asthenia [Unknown]

NARRATIVE: CASE EVENT DATE: 20240507
